FAERS Safety Report 5650710-3 (Version None)
Quarter: 2008Q1

REPORT INFORMATION
  Report Type: 
  Country: None (occurrence: None)
  Receive Date: 20080305
  Receipt Date: 20080222
  Transmission Date: 20080703
  Serious: Yes (Hospitalization, Other)
  Sender: FDA-Public Use
  Company Number: US-AMGEN-QUU266700

PATIENT
  Sex: Female

DRUGS (1)
  1. ENBREL [Suspect]
     Indication: JUVENILE ARTHRITIS

REACTIONS (4)
  - JUVENILE ARTHRITIS [None]
  - KNEE ARTHROPLASTY [None]
  - VISUAL DISTURBANCE [None]
  - VITRECTOMY [None]
